FAERS Safety Report 17809589 (Version 2)
Quarter: 2020Q2

REPORT INFORMATION
  Report Type: Report from Study
  Country: None (occurrence: CO)
  Receive Date: 20200521
  Receipt Date: 20200622
  Transmission Date: 20200714
  Serious: Yes (Hospitalization, Other)
  Sender: FDA-Public Use
  Company Number: CO-ABBVIE-20K-036-3411061-00

PATIENT
  Age: 37 Year
  Sex: Male
  Weight: 67 kg

DRUGS (1)
  1. HUMIRA [Suspect]
     Active Substance: ADALIMUMAB
     Indication: ANKYLOSING SPONDYLITIS
     Route: 058
     Dates: end: 20200415

REACTIONS (4)
  - Fibula fracture [Recovering/Resolving]
  - Arthralgia [Not Recovered/Not Resolved]
  - Limb injury [Recovering/Resolving]
  - Accident [Unknown]

NARRATIVE: CASE EVENT DATE: 2020
